FAERS Safety Report 6305859-9 (Version None)
Quarter: 2009Q3

REPORT INFORMATION
  Report Type: 
  Country: None (occurrence: None)
  Receive Date: 20090812
  Receipt Date: 20090804
  Transmission Date: 20100115
  Serious: Yes (Hospitalization)
  Sender: FDA-Public Use
  Company Number: US-ASTRAZENECA-2007UW26565

PATIENT
  Age: 881 Month
  Sex: Female
  Weight: 89.4 kg

DRUGS (4)
  1. PULMICORT FLEXHALER [Suspect]
     Indication: ASTHMA
     Dosage: 180/4.5, 2 PUFFS, DAILY
     Route: 055
     Dates: start: 20071001
  2. PROAIR HFA [Suspect]
     Route: 055
  3. OXYGEN [Concomitant]
  4. SYNTHROID [Concomitant]

REACTIONS (6)
  - ACTIVITIES OF DAILY LIVING IMPAIRED [None]
  - ASTHMA [None]
  - DRUG INEFFECTIVE [None]
  - DYSPNOEA [None]
  - IMPAIRED WORK ABILITY [None]
  - PNEUMONIA [None]
